FAERS Safety Report 6591459-2 (Version None)
Quarter: 2010Q1

REPORT INFORMATION
  Report Type: 
  Country: None (occurrence: None)
  Receive Date: 20100219
  Receipt Date: 20100209
  Transmission Date: 20100710
  Serious: Yes (Hospitalization)
  Sender: FDA-Public Use
  Company Number: ES-ELI_LILLY_AND_COMPANY-ES201002002271

PATIENT
  Age: 69 Year
  Sex: Female

DRUGS (6)
  1. FORTEO [Suspect]
     Indication: OSTEOPOROSIS
     Dosage: 20 UG, DAILY (1/D)
     Route: 058
     Dates: start: 20090501, end: 20100101
  2. FORTEO [Suspect]
     Dosage: 20 UG, DAILY (1/D)
     Route: 058
     Dates: start: 20100201
  3. IRON [Concomitant]
     Indication: ANAEMIA
     Dosage: UNK, UNKNOWN
     Route: 065
  4. LORAZEPAM [Concomitant]
     Dosage: UNK, UNKNOWN
     Route: 065
  5. VITAMINS NOS [Concomitant]
     Dosage: UNK, UNKNOWN
     Route: 065
  6. LORMETAZEPAM [Concomitant]
     Indication: SLEEP DISORDER
     Dosage: UNK, UNKNOWN
     Route: 065

REACTIONS (5)
  - CARDIOVASCULAR DISORDER [None]
  - DIZZINESS [None]
  - FALL [None]
  - LOSS OF CONSCIOUSNESS [None]
  - NUCHAL RIGIDITY [None]
